FAERS Safety Report 8983028 (Version 3)
Quarter: 2020Q3

REPORT INFORMATION
  Report Type: Spontaneous
  Country: PT (occurrence: PT)
  Receive Date: 20121224
  Receipt Date: 20200721
  Transmission Date: 20201103
  Serious: Yes (Hospitalization, Other)
  Sender: FDA-Public Use
  Company Number: PHHY2012PT118234

PATIENT
  Age: 14 Year
  Sex: Male

DRUGS (9)
  1. MYCOPHENOLATE MOFETIL. [Suspect]
     Active Substance: MYCOPHENOLATE MOFETIL
     Indication: PROPHYLAXIS AGAINST TRANSPLANT REJECTION
     Dosage: UNK
     Route: 065
  2. CEFUROXIME. [Concomitant]
     Active Substance: CEFUROXIME
     Indication: OPPORTUNISTIC INFECTION
     Dosage: UNK
     Route: 065
  3. ITRACONAZOL [Concomitant]
     Active Substance: ITRACONAZOLE
     Indication: OPPORTUNISTIC INFECTION
     Dosage: UNK
     Route: 065
  4. MYCOSTATIN [Concomitant]
     Active Substance: NYSTATIN
     Indication: OPPORTUNISTIC INFECTION
     Dosage: UNK
     Route: 065
  5. NYSTATIN. [Concomitant]
     Active Substance: NYSTATIN
     Indication: OPPORTUNISTIC INFECTION PROPHYLAXIS
     Dosage: UNK
     Route: 065
  6. TACROLIMUS. [Suspect]
     Active Substance: TACROLIMUS
     Indication: PROPHYLAXIS AGAINST TRANSPLANT REJECTION
     Dosage: UNK
     Route: 065
  7. PREDNISONE. [Suspect]
     Active Substance: PREDNISONE
     Indication: IMMUNOSUPPRESSION
     Dosage: UNK
     Route: 065
  8. ITRACONAZOL [Concomitant]
     Active Substance: ITRACONAZOLE
     Indication: OPPORTUNISTIC INFECTION PROPHYLAXIS
  9. CEFUROXIME. [Concomitant]
     Active Substance: CEFUROXIME
     Indication: OPPORTUNISTIC INFECTION PROPHYLAXIS

REACTIONS (14)
  - Seizure [Recovered/Resolved]
  - Vasogenic cerebral oedema [Recovered/Resolved]
  - Posterior reversible encephalopathy syndrome [Recovering/Resolving]
  - Lethargy [Recovered/Resolved]
  - Clonus [Recovered/Resolved]
  - Generalised tonic-clonic seizure [Recovering/Resolving]
  - Encephalopathy [Recovering/Resolving]
  - Depressed level of consciousness [Recovering/Resolving]
  - Extensor plantar response [Recovered/Resolved]
  - Partial seizures [Recovered/Resolved]
  - Eye movement disorder [Recovered/Resolved]
  - Cognitive disorder [Recovered/Resolved]
  - Somnolence [Recovered/Resolved]
  - Hallucination, visual [Recovered/Resolved]
